FAERS Safety Report 24099788 (Version 1)
Quarter: 2024Q3

REPORT INFORMATION
  Report Type: Report from Study
  Country: US (occurrence: US)
  Receive Date: 20240716
  Receipt Date: 20240716
  Transmission Date: 20241016
  Serious: Yes (Other)
  Sender: ABBVIE
  Company Number: US-ABBVIE-5839726

PATIENT
  Age: 67 Year
  Sex: Female

DRUGS (1)
  1. HUMIRA [Suspect]
     Active Substance: ADALIMUMAB
     Indication: Rheumatoid arthritis
     Dosage: DOSAGE: 1 MG/ML CITRATE FREE
     Route: 058

REACTIONS (2)
  - Suicidal ideation [Unknown]
  - Pain [Unknown]

NARRATIVE: CASE EVENT DATE: 20240712
